APPROVED DRUG PRODUCT: PANCURONIUM BROMIDE
Active Ingredient: PANCURONIUM BROMIDE
Strength: 2MG/ML
Dosage Form/Route: INJECTABLE;INJECTION
Application: A072212 | Product #001
Applicant: IGI LABORATORIES INC
Approved: Mar 31, 1988 | RLD: No | RS: No | Type: DISCN